FAERS Safety Report 7997751-9 (Version None)
Quarter: 2011Q4

REPORT INFORMATION
  Report Type: 
  Country: None (occurrence: None)
  Receive Date: 20111221
  Receipt Date: 20111216
  Transmission Date: 20120403
  Serious: Yes (Life-Threatening, Other)
  Sender: FDA-Public Use
  Company Number: IT-BAYER-2011-117130

PATIENT
  Age: 71 Year
  Sex: Male

DRUGS (1)
  1. ULTRAVIST 150 [Suspect]
     Indication: COMPUTERISED TOMOGRAM
     Dosage: 120 ML, ONCE
     Route: 042
     Dates: start: 20111206, end: 20111206

REACTIONS (4)
  - CARDIAC ARREST [None]
  - CONTRAST MEDIA REACTION [None]
  - ASTHENIA [None]
  - CYANOSIS [None]
